FAERS Safety Report 8625104-9 (Version None)
Quarter: 2012Q3

REPORT INFORMATION
  Report Type: 
  Country: None (occurrence: None)
  Receive Date: 20120827
  Receipt Date: 20120822
  Transmission Date: 20120928
  Serious: Yes (Other)
  Sender: FDA-Public Use
  Company Number: US-GLAXOSMITHKLINE-A0990583A

PATIENT
  Age: 28 Year
  Sex: Male

DRUGS (5)
  1. LAMICTAL [Suspect]
     Indication: EPILEPSY
     Dosage: 75MG PER DAY
     Route: 048
     Dates: start: 20120601
  2. DIVALPROEX SODIUM [Concomitant]
  3. ADVIL [Suspect]
     Indication: PAIN
     Route: 048
  4. PAIN MEDICATIONS [Concomitant]
  5. DICLOFENAC [Concomitant]

REACTIONS (4)
  - VOMITING [None]
  - CONVULSION [None]
  - ABDOMINAL PAIN UPPER [None]
  - DRUG INTERACTION [None]
